FAERS Safety Report 5674087-2 (Version None)
Quarter: 2008Q1

REPORT INFORMATION
  Report Type: 
  Country: None (occurrence: None)
  Receive Date: 20080320
  Receipt Date: 20080311
  Transmission Date: 20080703
  Serious: Yes (Hospitalization, Other)
  Sender: FDA-Public Use
  Company Number: AT-JNJFOC-20080204627

PATIENT
  Age: 67 Year
  Sex: Female
  Weight: 54 kg

DRUGS (1)
  1. CAELYX [Suspect]
     Indication: ENDOMETRIAL CANCER
     Dosage: CYCLE 1
     Route: 042

REACTIONS (7)
  - BACK PAIN [None]
  - CHILLS [None]
  - FLUSHING [None]
  - INFUSION RELATED REACTION [None]
  - MALAISE [None]
  - PAIN IN EXTREMITY [None]
  - TREMOR [None]
